FAERS Safety Report 20417459 (Version 1)
Quarter: 2022Q1

REPORT INFORMATION
  Report Type: Spontaneous
  Country: CN (occurrence: CN)
  Receive Date: 20220202
  Receipt Date: 20220202
  Transmission Date: 20220424
  Serious: Yes (Life-Threatening, Hospitalization, Other)
  Sender: FDA-Public Use
  Company Number: CN-PFIZER INC-202200123695

PATIENT
  Age: 70 Year
  Sex: Male
  Weight: 60 kg

DRUGS (5)
  1. PACLITAXEL [Suspect]
     Active Substance: PACLITAXEL
     Indication: Gastric cancer
     Dosage: 300 MG, 1X/DAY
     Route: 034
     Dates: start: 20220105, end: 20220105
  2. PACLITAXEL [Suspect]
     Active Substance: PACLITAXEL
     Dosage: 30 MG, 1X/DAY
     Route: 041
     Dates: start: 20220105, end: 20220105
  3. PACLITAXEL [Suspect]
     Active Substance: PACLITAXEL
     Indication: Gastric cancer
     Dosage: 200 MG, 1X/DAY
     Route: 041
     Dates: start: 20220105, end: 20220105
  4. SODIUM CHLORIDE [Concomitant]
     Active Substance: SODIUM CHLORIDE
     Indication: Vehicle solution use
     Dosage: 100 ML, 1X/DAY
     Route: 034
     Dates: start: 20220105, end: 20220105
  5. SODIUM CHLORIDE [Concomitant]
     Active Substance: SODIUM CHLORIDE
     Dosage: 100 ML, 1X/DAY
     Route: 041
     Dates: start: 20220105, end: 20220105

REACTIONS (5)
  - Myelosuppression [Recovering/Resolving]
  - Dyspnoea [Unknown]
  - Pneumonia aspiration [Unknown]
  - Respiratory failure [Unknown]
  - Off label use [Unknown]

NARRATIVE: CASE EVENT DATE: 20220101
